FAERS Safety Report 22055669 (Version 1)
Quarter: 2023Q1

REPORT INFORMATION
  Report Type: Spontaneous
  Country: CN (occurrence: CN)
  Receive Date: 20230302
  Receipt Date: 20230302
  Transmission Date: 20230418
  Serious: Yes (Other)
  Sender: FDA-Public Use
  Company Number: CN-PFIZER INC-PV202300039290

PATIENT
  Age: 56 Year
  Sex: Male
  Weight: 70 kg

DRUGS (4)
  1. VFEND [Suspect]
     Active Substance: VORICONAZOLE
     Indication: Connective tissue disorder
     Dosage: 0.2 G, 2X/DAY
     Route: 048
     Dates: start: 20230218, end: 20230224
  2. VFEND [Suspect]
     Active Substance: VORICONAZOLE
     Indication: Bronchopulmonary aspergillosis
  3. MOXIFLOXACIN HYDROCHLORIDE [Concomitant]
     Active Substance: MOXIFLOXACIN HYDROCHLORIDE
     Indication: Bronchopulmonary aspergillosis
     Dosage: 0.4 G, 1X/DAY
     Route: 041
     Dates: start: 20230215, end: 20230222
  4. MOXIFLOXACIN HYDROCHLORIDE [Concomitant]
     Active Substance: MOXIFLOXACIN HYDROCHLORIDE
     Indication: Connective tissue disorder

REACTIONS (3)
  - Hypoglycaemia [Unknown]
  - Asthenia [Unknown]
  - Palpitations [Unknown]

NARRATIVE: CASE EVENT DATE: 20230218
